FAERS Safety Report 8991279 (Version 1)
Quarter: 2012Q4

REPORT INFORMATION
  Report Type: Report from Study
  Country: CA (occurrence: CA)
  Receive Date: 20121231
  Receipt Date: 20121231
  Transmission Date: 20130627
  Serious: Yes (Other)
  Sender: FDA-Public Use
  Company Number: CA-ROCHE-1168700

PATIENT
  Sex: Male
  Weight: 130.14 kg

DRUGS (3)
  1. OMALIZUMAB [Suspect]
     Indication: ASTHMA
     Dosage: 300 mg, Q2W
     Route: 058
     Dates: start: 20080610
  2. OMALIZUMAB [Suspect]
     Indication: DIABETES MELLITUS
  3. MORPHINE [Concomitant]
     Indication: PRODUCT USED FOR UNKNOWN INDICATION

REACTIONS (18)
  - Asthma [Unknown]
  - Wound [Unknown]
  - Back pain [Unknown]
  - Heart rate increased [Unknown]
  - Musculoskeletal chest pain [Unknown]
  - Seasonal allergy [Unknown]
  - Blood pressure abnormal [Unknown]
  - Epistaxis [Unknown]
  - Pain in extremity [Unknown]
  - Upper-airway cough syndrome [Recovered/Resolved]
  - Food allergy [Not Recovered/Not Resolved]
  - Nasal discharge discolouration [Unknown]
  - Headache [Unknown]
  - Nausea [Unknown]
  - Rash pruritic [Not Recovered/Not Resolved]
  - Urticaria [Unknown]
  - Rash [Not Recovered/Not Resolved]
  - Arthralgia [Unknown]
